FAERS Safety Report 18234201 (Version 2)
Quarter: 2020Q3

REPORT INFORMATION
  Report Type: Spontaneous
  Country: US (occurrence: US)
  Receive Date: 20200904
  Receipt Date: 20200923
  Transmission Date: 20201103
  Serious: No
  Sender: FDA-Public Use
  Company Number: US-ASTRAZENECA-2020SF02265

PATIENT
  Sex: Female
  Weight: 78 kg

DRUGS (4)
  1. PREDNISONE. [Concomitant]
     Active Substance: PREDNISONE
     Indication: HEADACHE
     Route: 065
  2. PREDNISONE. [Concomitant]
     Active Substance: PREDNISONE
     Indication: HYPERTENSION
     Route: 065
  3. SYMBICORT [Suspect]
     Active Substance: BUDESONIDE\FORMOTEROL FUMARATE DIHYDRATE
     Indication: ASTHMA
     Dosage: 160/4.5, TWO PUFFS TWICE DAILY
     Route: 055
     Dates: start: 2005
  4. PREDNISONE. [Concomitant]
     Active Substance: PREDNISONE
     Indication: FLUID RETENTION
     Route: 065

REACTIONS (16)
  - Body height decreased [Unknown]
  - Fluid retention [Unknown]
  - Fibromyalgia [Unknown]
  - Headache [Unknown]
  - Road traffic accident [Unknown]
  - Dyspnoea [Unknown]
  - Tongue blistering [Unknown]
  - Fatigue [Unknown]
  - Drug intolerance [Unknown]
  - Drug delivery system issue [Unknown]
  - Sciatic nerve injury [Unknown]
  - Bone pain [Unknown]
  - Osteoporosis [Unknown]
  - Visual impairment [Unknown]
  - Weight fluctuation [Unknown]
  - Cough [Unknown]
